APPROVED DRUG PRODUCT: CYPROHEPTADINE HYDROCHLORIDE
Active Ingredient: CYPROHEPTADINE HYDROCHLORIDE
Strength: 4MG
Dosage Form/Route: TABLET;ORAL
Application: A087566 | Product #001
Applicant: MD PHARMACEUTICAL INC
Approved: Nov 10, 1982 | RLD: No | RS: No | Type: DISCN